FAERS Safety Report 9939721 (Version 1)
Quarter: 2014Q1

REPORT INFORMATION
  Report Type: Report from Study
  Country: US (occurrence: US)
  Receive Date: 20140303
  Receipt Date: 20140303
  Transmission Date: 20141002
  Serious: No
  Sender: FDA-Public Use
  Company Number: US-ABBVIE-13P-163-1036503-00

PATIENT
  Age: 52 Year
  Sex: Male
  Weight: 71.73 kg

DRUGS (6)
  1. HUMIRA [Suspect]
     Indication: PSORIATIC ARTHROPATHY
     Dates: start: 201007
  2. JANUMET [Concomitant]
     Indication: DIABETES MELLITUS
  3. PREVASTATIN (NON-ABBOTT) [Concomitant]
     Indication: BLOOD CHOLESTEROL
  4. HYDROXYZINE (NON-ABBOTT) [Concomitant]
     Indication: HYPERSENSITIVITY
  5. FOLIC ACID [Concomitant]
     Indication: PRODUCT USED FOR UNKNOWN INDICATION
  6. METHOTREXATE (NON-ABBOTT) [Concomitant]
     Indication: PRODUCT USED FOR UNKNOWN INDICATION

REACTIONS (1)
  - Nasopharyngitis [Recovering/Resolving]
